FAERS Safety Report 17198186 (Version 1)
Quarter: 2019Q4

REPORT INFORMATION
  Report Type: Spontaneous
  Country: BR (occurrence: BR)
  Receive Date: 20191225
  Receipt Date: 20191225
  Transmission Date: 20200122
  Serious: Yes (Other)
  Sender: FDA-Public Use
  Company Number: BR-ROCHE-2387478

PATIENT
  Age: 60 Year
  Sex: Male

DRUGS (2)
  1. VALIUM [Suspect]
     Active Substance: DIAZEPAM
     Route: 065
  2. VALIUM [Suspect]
     Active Substance: DIAZEPAM
     Indication: ANXIETY
     Route: 065
     Dates: start: 1994

REACTIONS (7)
  - Ill-defined disorder [Unknown]
  - Diaphragmatic disorder [Unknown]
  - Respiratory rate increased [Unknown]
  - Panic disorder [Not Recovered/Not Resolved]
  - Weight decreased [Unknown]
  - Diaphragm muscle weakness [Unknown]
  - Apnoea [Not Recovered/Not Resolved]

NARRATIVE: CASE EVENT DATE: 201904
